FAERS Safety Report 8340324 (Version 5)
Quarter: 2021Q2

REPORT INFORMATION
  Report Type: Spontaneous
  Country: JP (occurrence: JP)
  Receive Date: 20120117
  Receipt Date: 20210419
  Transmission Date: 20210717
  Serious: Yes (Hospitalization, Other)
  Sender: FDA-Public Use
  Company Number: PHHY2012JP002861

PATIENT
  Age: 27 Year
  Sex: Male

DRUGS (7)
  1. CYCLOPHOSPHAMIDE. [Suspect]
     Active Substance: CYCLOPHOSPHAMIDE
     Indication: ACUTE LYMPHOCYTIC LEUKAEMIA
     Dosage: 1800 MG, QD
     Route: 042
     Dates: start: 20110930
  2. VINCRISTINE SULFATE. [Suspect]
     Active Substance: VINCRISTINE SULFATE
     Indication: ACUTE LYMPHOCYTIC LEUKAEMIA
     Dosage: 2 MG, QD
     Route: 042
     Dates: start: 20110930
  3. DAUNOMYCIN [Suspect]
     Active Substance: DAUNORUBICIN
     Indication: ACUTE LYMPHOCYTIC LEUKAEMIA
     Dosage: 90 MG, QD
     Route: 042
     Dates: start: 20110930, end: 20111002
  4. DASATINIB. [Suspect]
     Active Substance: DASATINIB
     Dosage: 100 MG, QD
     Route: 048
  5. GLIVEC [Suspect]
     Active Substance: IMATINIB MESYLATE
     Dosage: 300 MG, QD
     Route: 048
     Dates: start: 20111128
  6. GLIVEC [Suspect]
     Active Substance: IMATINIB MESYLATE
     Indication: ACUTE LYMPHOCYTIC LEUKAEMIA
     Dosage: 600 MG, QD
     Route: 048
     Dates: start: 20111012, end: 20111012
  7. DASATINIB. [Suspect]
     Active Substance: DASATINIB
     Indication: PRODUCT USED FOR UNKNOWN INDICATION
     Dosage: 70 MG, QD
     Route: 065

REACTIONS (21)
  - Alanine aminotransferase increased [Unknown]
  - Pneumonia [Unknown]
  - Septic shock [Unknown]
  - Disseminated intravascular coagulation [Unknown]
  - Infection [Recovering/Resolving]
  - Drug intolerance [Unknown]
  - Multiple organ dysfunction syndrome [Unknown]
  - Platelet count decreased [Unknown]
  - Aspartate aminotransferase increased [Unknown]
  - Paralysis [Unknown]
  - Asthenia [Unknown]
  - Nausea [Not Recovered/Not Resolved]
  - Escherichia sepsis [Unknown]
  - Cerebral haemorrhage [Recovering/Resolving]
  - Hypokinesia [Unknown]
  - Intensive care unit acquired weakness [Unknown]
  - Blood bilirubin increased [Unknown]
  - Axonal neuropathy [Unknown]
  - Myelosuppression [Recovered/Resolved]
  - Myalgia [Recovered/Resolved]
  - Pleural effusion [Recovered/Resolved]

NARRATIVE: CASE EVENT DATE: 20111013
